FAERS Safety Report 8909358 (Version 1)
Quarter: 2012Q4

REPORT INFORMATION
  Report Type: Report from Study
  Country: JP (occurrence: JP)
  Receive Date: 20121115
  Receipt Date: 20121115
  Transmission Date: 20130627
  Serious: Yes (Other)
  Sender: FDA-Public Use
  Company Number: JP-ASTELLAS-2012JP008774

PATIENT
  Age: 78 Year
  Sex: Female
  Weight: 37.8 kg

DRUGS (1)
  1. MIRABEGRON [Suspect]
     Indication: HYPERTONIC BLADDER
     Dosage: 50 mg, UID/QD
     Route: 048
     Dates: start: 20120607, end: 20120803

REACTIONS (1)
  - N-terminal prohormone brain natriuretic peptide increased [Unknown]
